FAERS Safety Report 9647702 (Version 2)
Quarter: 2013Q4

REPORT INFORMATION
  Report Type: Spontaneous
  Country: FR (occurrence: FR)
  Receive Date: 20131028
  Receipt Date: 20131028
  Transmission Date: 20140711
  Serious: Yes (Death, Hospitalization, Other)
  Sender: FDA-Public Use
  Company Number: FR-JNJFOC-20130216431

PATIENT
  Sex: Female

DRUGS (5)
  1. XARELTO [Suspect]
     Indication: CEREBROVASCULAR ACCIDENT PROPHYLAXIS
     Route: 048
     Dates: start: 201301
  2. XARELTO [Suspect]
     Indication: ATRIAL FIBRILLATION
     Route: 048
     Dates: start: 201301
  3. CELIPROLOL [Concomitant]
     Route: 065
  4. CORDARONE [Concomitant]
     Route: 065
  5. LEVOTHYROX [Concomitant]
     Route: 065

REACTIONS (3)
  - Cerebral haematoma [Fatal]
  - Fall [Unknown]
  - Off label use [Unknown]
